FAERS Safety Report 20387227 (Version 3)
Quarter: 2022Q1

REPORT INFORMATION
  Report Type: Report from Study
  Country: NZ (occurrence: NZ)
  Receive Date: 20220127
  Receipt Date: 20220222
  Transmission Date: 20220423
  Serious: Yes (Disabling, Other)
  Sender: FDA-Public Use
  Company Number: NZ-BRISTOL-MYERS SQUIBB COMPANY-BMS-2022-009318

PATIENT
  Age: 70 Year
  Sex: Female
  Weight: 53 kg

DRUGS (13)
  1. NIVOLUMAB [Suspect]
     Active Substance: NIVOLUMAB
     Indication: Malignant melanoma
     Dosage: 161.4 MILLIGRAM
     Route: 042
     Dates: start: 20191021
  2. THYROXINE [Concomitant]
     Active Substance: LEVOTHYROXINE
     Indication: Hypothyroidism
     Dosage: 1 DOSAGE FORM= 100 UNITS NOS
     Route: 065
     Dates: start: 20200128
  3. THYROXINE [Concomitant]
     Active Substance: LEVOTHYROXINE
     Dosage: 100 MILLIGRAM
     Route: 065
     Dates: start: 20201127
  4. THYROXINE [Concomitant]
     Active Substance: LEVOTHYROXINE
     Dosage: 25 MILLIGRAM
     Route: 065
     Dates: start: 20201127
  5. ACETAMINOPHEN [Concomitant]
     Active Substance: ACETAMINOPHEN
     Indication: Neck pain
     Dosage: 2 GRAM
     Route: 065
     Dates: start: 20191115
  6. CETIRIZINE [Concomitant]
     Active Substance: CETIRIZINE HYDROCHLORIDE
     Indication: Pruritus
     Dosage: 20 MILLIGRAM
     Route: 065
     Dates: start: 20200310
  7. VOLTAREN [Concomitant]
     Active Substance: DICLOFENAC SODIUM
     Indication: Arthralgia
     Dosage: 25 MILLIGRAM
     Route: 065
     Dates: start: 20200327
  8. CYCLIZINE [Concomitant]
     Active Substance: CYCLIZINE
     Indication: Nausea
     Dosage: 50 MILLIGRAM
     Route: 065
     Dates: start: 20210211
  9. OMEPRAZOLE [Concomitant]
     Active Substance: OMEPRAZOLE
     Indication: Nausea
     Dosage: 20 MILLIGRAM
     Route: 065
     Dates: start: 20210211, end: 20210307
  10. NAPROSYN [Concomitant]
     Active Substance: NAPROXEN
     Indication: Neck pain
     Dosage: 750 MILLIGRAM
     Route: 065
     Dates: start: 20191118
  11. NAPROSYN [Concomitant]
     Active Substance: NAPROXEN
     Indication: Arthralgia
  12. LORATADINE [Concomitant]
     Active Substance: LORATADINE
     Indication: Pruritus
     Dosage: 10 MILLIGRAM
     Route: 065
     Dates: start: 20191216
  13. DOCUSATE SODIUM\SENNOSIDES A AND B [Concomitant]
     Active Substance: DOCUSATE SODIUM\SENNOSIDES A AND B
     Indication: Constipation
     Dosage: 1 DOSAGE FORM=1 UNIT NOS
     Route: 065
     Dates: start: 20191125

REACTIONS (1)
  - Pancreatic failure [Not Recovered/Not Resolved]

NARRATIVE: CASE EVENT DATE: 20210302
